FAERS Safety Report 5816096-6 (Version None)
Quarter: 2008Q3

REPORT INFORMATION
  Report Type: 
  Country: None (occurrence: None)
  Receive Date: 20080716
  Receipt Date: 20080716
  Transmission Date: 20090109
  Serious: Yes (Life-Threatening, Hospitalization)
  Sender: FDA-Public Use
  Company Number: None

PATIENT
  Age: 32 Year
  Sex: Female
  Weight: 45.3597 kg

DRUGS (5)
  1. HALDOL [Suspect]
     Indication: SCHIZOAFFECTIVE DISORDER
     Dosage: 40 MGS.  PO
     Route: 048
     Dates: start: 19880925, end: 19900101
  2. THORISTINE [Concomitant]
  3. STELLASINE [Concomitant]
  4. MELLARIL [Concomitant]
  5. LOXITANE [Concomitant]

REACTIONS (11)
  - ABASIA [None]
  - CONVULSION [None]
  - DRUG HYPERSENSITIVITY [None]
  - FALL [None]
  - HEART RATE INCREASED [None]
  - JAW FRACTURE [None]
  - LOSS OF CONSCIOUSNESS [None]
  - MUSCLE SPASMS [None]
  - PAIN [None]
  - TOOTH INJURY [None]
  - TOOTH LOSS [None]
